FAERS Safety Report 24858252 (Version 2)
Quarter: 2025Q1

REPORT INFORMATION
  Report Type: Report from Study
  Country: CA (occurrence: CA)
  Receive Date: 20250117
  Receipt Date: 20250124
  Transmission Date: 20250408
  Serious: Yes (Other)
  Sender: TEVA
  Company Number: CA-TEVA-VS-3286410

PATIENT
  Age: 46 Year
  Sex: Male

DRUGS (1)
  1. AJOVY [Suspect]
     Active Substance: FREMANEZUMAB-VFRM
     Indication: Migraine prophylaxis
     Dosage: LAST DOSE ADMINISTERED DATE : 2025-01-07
     Route: 058
     Dates: start: 20250107

REACTIONS (4)
  - Loss of consciousness [Recovered/Resolved]
  - Therapeutic product effect incomplete [Unknown]
  - Fatigue [Recovered/Resolved]
  - COVID-19 [Unknown]

NARRATIVE: CASE EVENT DATE: 20250101
